FAERS Safety Report 10059277 (Version 1)
Quarter: 2014Q2

REPORT INFORMATION
  Report Type: Spontaneous
  Country: FR (occurrence: FR)
  Receive Date: 20140404
  Receipt Date: 20140404
  Transmission Date: 20141212
  Serious: Yes (Life-Threatening)
  Sender: FDA-Public Use
  Company Number: FR-PFIZER INC-2014093573

PATIENT
  Age: 44 Year
  Sex: Female

DRUGS (2)
  1. SOLU-MEDROL [Suspect]
     Dosage: 120 MG, SINGLE
     Route: 042
     Dates: start: 20130916, end: 20130916
  2. TAXOTERE [Suspect]
     Dosage: UNK
     Route: 042
     Dates: start: 20130916, end: 20130916

REACTIONS (1)
  - Anaphylactic shock [Recovered/Resolved]
